FAERS Safety Report 5470304-2 (Version None)
Quarter: 2007Q3

REPORT INFORMATION
  Report Type: 
  Country: None (occurrence: None)
  Receive Date: 20070927
  Receipt Date: 20070921
  Transmission Date: 20080115
  Serious: Yes (Death, Hospitalization)
  Sender: FDA-Public Use
  Company Number: IT-BAYER-200714717GDS

PATIENT
  Age: 61 Year
  Sex: Female

DRUGS (4)
  1. SORAFENIB [Suspect]
     Indication: SARCOMA
     Route: 048
  2. DELTACORTENE [Concomitant]
     Indication: DRUG USE FOR UNKNOWN INDICATION
     Route: 065
  3. DEURSIL [Concomitant]
     Indication: DRUG USE FOR UNKNOWN INDICATION
     Route: 065
  4. CARPLUS [Concomitant]
     Indication: DRUG USE FOR UNKNOWN INDICATION
     Route: 065

REACTIONS (3)
  - BRAIN OEDEMA [None]
  - DYSPNOEA [None]
  - SYNOVIAL SARCOMA [None]
